FAERS Safety Report 10393126 (Version 1)
Quarter: 2014Q3

REPORT INFORMATION
  Report Type: Spontaneous
  Country: GB (occurrence: GB)
  Receive Date: 20140819
  Receipt Date: 20140819
  Transmission Date: 20150326
  Serious: Yes (Other)
  Sender: FDA-Public Use
  Company Number: GB-PFIZER INC-2014225176

PATIENT
  Age: 27 Year
  Sex: Female
  Weight: 69.85 kg

DRUGS (2)
  1. DEPO-PROVERA [Suspect]
     Active Substance: MEDROXYPROGESTERONE ACETATE
     Indication: CONTRACEPTION
     Dosage: UNK
     Route: 051
     Dates: start: 20120301, end: 20140301
  2. CERAZETTE [Concomitant]
     Active Substance: DESOGESTREL

REACTIONS (11)
  - Affect lability [Unknown]
  - Disturbance in attention [Unknown]
  - Depressed mood [Recovering/Resolving]
  - Metamorphopsia [Unknown]
  - Palpitations [Unknown]
  - Anxiety [Recovering/Resolving]
  - Irritability [Unknown]
  - Paraesthesia [Unknown]
  - Chest pain [Unknown]
  - Hypoaesthesia [Unknown]
  - Migraine with aura [Unknown]

NARRATIVE: CASE EVENT DATE: 20130501
